FAERS Safety Report 13863300 (Version 1)
Quarter: 2017Q3

REPORT INFORMATION
  Report Type: Spontaneous
  Country: None (occurrence: US)
  Receive Date: 20170814
  Receipt Date: 20170814
  Transmission Date: 20171127
  Serious: Yes (Other)
  Sender: FDA-Public Use
  Company Number: US-ACCORD-056946

PATIENT
  Age: 72 Year
  Sex: Male

DRUGS (2)
  1. DEGARELIX [Concomitant]
     Active Substance: DEGARELIX
     Indication: ANDROGEN THERAPY
  2. DOCETAXEL. [Suspect]
     Active Substance: DOCETAXEL
     Indication: PROSTATE CANCER METASTATIC
     Dosage: 143 MG
     Route: 042

REACTIONS (2)
  - Infusion site extravasation [Recovered/Resolved with Sequelae]
  - Infusion site plaque [Recovered/Resolved with Sequelae]
